FAERS Safety Report 4462535-5 (Version None)
Quarter: 2004Q3

REPORT INFORMATION
  Report Type: 
  Country: None (occurrence: None)
  Receive Date: 20040929
  Receipt Date: 20040927
  Transmission Date: 20050211
  Serious: Yes (Death, Hospitalization)
  Sender: FDA-Public Use
  Company Number: US-MERCK-0409USA02156

PATIENT
  Sex: Female

DRUGS (1)
  1. VIOXX [Suspect]
     Indication: JOINT SWELLING
     Route: 048
     Dates: start: 20020101

REACTIONS (3)
  - DEATH [None]
  - DRUG HYPERSENSITIVITY [None]
  - HAEMORRHAGE [None]
